FAERS Safety Report 5207118-4 (Version None)
Quarter: 2007Q1

REPORT INFORMATION
  Report Type: 
  Country: None (occurrence: None)
  Receive Date: 20070112
  Receipt Date: 20070109
  Transmission Date: 20070707
  Serious: Yes (Hospitalization)
  Sender: FDA-Public Use
  Company Number: DE-ROCHE-440794

PATIENT
  Age: 66 Year
  Sex: Female

DRUGS (5)
  1. MYCOPHENOLATE MOFETIL [Suspect]
     Route: 042
     Dates: start: 20051207, end: 20060207
  2. DACLIZUMAB [Suspect]
     Route: 065
     Dates: start: 20051207
  3. DACLIZUMAB [Suspect]
     Route: 065
  4. FK506 [Suspect]
     Route: 048
     Dates: start: 20051207
  5. SIMULECT [Suspect]
     Route: 065

REACTIONS (3)
  - PNEUMONIA [None]
  - PULMONARY EMBOLISM [None]
  - SUBILEUS [None]
